FAERS Safety Report 7971024-2 (Version None)
Quarter: 2011Q4

REPORT INFORMATION
  Report Type: 
  Country: None (occurrence: None)
  Receive Date: 20111212
  Receipt Date: 20111212
  Transmission Date: 20120403
  Serious: Yes (Other)
  Sender: FDA-Public Use
  Company Number: None

PATIENT

DRUGS (1)
  1. NEOFRIN 2.5% -PHENYLEPHRINE OPH- [Suspect]
     Indication: DIAGNOSTIC PROCEDURE
     Route: 047

REACTIONS (2)
  - PRODUCT LABEL ISSUE [None]
  - MEDICATION ERROR [None]
